FAERS Safety Report 16971595 (Version 1)
Quarter: 2019Q4

REPORT INFORMATION
  Report Type: Spontaneous
  Country: SE (occurrence: SE)
  Receive Date: 20191029
  Receipt Date: 20191029
  Transmission Date: 20200122
  Serious: Yes (Other)
  Sender: FDA-Public Use
  Company Number: SE-MYLANLABS-2019M1102268

PATIENT
  Age: 44 Year
  Sex: Female
  Weight: 80 kg

DRUGS (1)
  1. BRUFEN RETARD 800 MG DEPOTTABLETTER [Suspect]
     Active Substance: IBUPROFEN
     Indication: PSORIATIC ARTHROPATHY
     Dosage: 800X2 TILL NATTEN
     Dates: start: 20190620

REACTIONS (2)
  - Gastric ulcer [Not Recovered/Not Resolved]
  - Bleeding varicose vein [Not Recovered/Not Resolved]

NARRATIVE: CASE EVENT DATE: 20190624
